FAERS Safety Report 5320007-X (Version None)
Quarter: 2007Q2

REPORT INFORMATION
  Report Type: 
  Country: None (occurrence: None)
  Receive Date: 20070509
  Receipt Date: 20070507
  Transmission Date: 20071010
  Serious: Yes (Other)
  Sender: FDA-Public Use
  Company Number: ES-BRISTOL-MYERS SQUIBB COMPANY-13771092

PATIENT
  Age: 58 Year
  Sex: Female

DRUGS (6)
  1. MITOMYCIN-C BULK POWDER [Suspect]
     Indication: OPEN ANGLE GLAUCOMA
  2. PREDNISOLONE [Suspect]
     Route: 047
  3. PREDNISOLONE + NEOMYCIN SULFATE [Suspect]
     Route: 047
  4. LATANOPROST [Concomitant]
     Indication: GLAUCOMA
  5. BRIMONIDINE TARTRATE [Concomitant]
     Indication: GLAUCOMA
  6. DORZOLAMIDE HCL [Concomitant]
     Indication: GLAUCOMA

REACTIONS (1)
  - INTRAOCULAR LENS OPACITY [None]
